FAERS Safety Report 4707187-1 (Version None)
Quarter: 2005Q3

REPORT INFORMATION
  Report Type: 
  Country: None (occurrence: None)
  Receive Date: 20050701
  Receipt Date: 20050615
  Transmission Date: 20060218
  Serious: Yes (Hospitalization)
  Sender: FDA-Public Use
  Company Number: B0381165A

PATIENT
  Age: 53 Year
  Sex: Female

DRUGS (1)
  1. ALBENZA [Suspect]
     Indication: ABDOMINAL PAIN

REACTIONS (9)
  - ABDOMINAL TENDERNESS [None]
  - ANOREXIA [None]
  - ANTI-HBS ANTIBODY POSITIVE [None]
  - ASTHENIA [None]
  - CHROMATURIA [None]
  - FEELING COLD [None]
  - HEPATOCELLULAR DAMAGE [None]
  - JAUNDICE [None]
  - PYREXIA [None]
